FAERS Safety Report 8146114 (Version 15)
Quarter: 2014Q1

REPORT INFORMATION
  Report Type: Spontaneous
  Country: US (occurrence: US)
  Receive Date: 20110921
  Receipt Date: 20140326
  Transmission Date: 20141002
  Serious: Yes (Hospitalization)
  Sender: FDA-Public Use
  Company Number: US-JNJFOC-20110905316

PATIENT
  Age: 8 Year
  Sex: Female
  Weight: 25.1 kg

DRUGS (4)
  1. TYLENOL [Suspect]
     Route: 065
  2. TYLENOL [Suspect]
     Indication: PYREXIA
     Route: 065
  3. MOTRIN [Suspect]
     Indication: PYREXIA
  4. NYQUIL [Suspect]
     Indication: PYREXIA
     Dates: start: 20100204

REACTIONS (1)
  - Toxic epidermal necrolysis [Recovered/Resolved with Sequelae]
